FAERS Safety Report 13516427 (Version 2)
Quarter: 2017Q2

REPORT INFORMATION
  Report Type: Report from Study
  Country: None (occurrence: HU)
  Receive Date: 20170505
  Receipt Date: 20170515
  Transmission Date: 20170830
  Serious: Yes (Other)
  Sender: FDA-Public Use
  Company Number: HU-ABBVIE-17K-076-1964822-00

PATIENT
  Age: 74 Year
  Sex: Male
  Weight: 80 kg

DRUGS (5)
  1. DUODOPA [Suspect]
     Active Substance: CARBIDOPA\LEVODOPA
     Indication: PARKINSON^S DISEASE
     Dosage: MORNING DOSE 10ML; CONTINUOUS DOSE 3.6ML/H;EXTRA DOSE 1.5ML
     Route: 050
     Dates: start: 20170314
  2. CO-RENITEC [Concomitant]
     Active Substance: ENALAPRIL\HYDROCHLOROTHIAZIDE
     Indication: HYPERTENSION
     Dosage: 1 TABLET IN THE MORNING
     Route: 048
     Dates: start: 2011
  3. ASENTRA [Concomitant]
     Active Substance: SERTRALINE HYDROCHLORIDE
     Indication: DEPRESSION
     Dosage: 1 TABLET IN THE EVENING
     Route: 048
  4. XANAX [Concomitant]
     Active Substance: ALPRAZOLAM
     Indication: ANXIETY
     Dosage: 2 TABLETS IN THE EVENING
     Route: 048
  5. FELODIPIN [Concomitant]
     Active Substance: FELODIPINE
     Indication: HYPERTENSION
     Dosage: 1 TABLET IN THE EVENING
     Route: 048

REACTIONS (11)
  - Mobility decreased [Recovered/Resolved]
  - Dyspepsia [Unknown]
  - Viral infection [Unknown]
  - Decreased appetite [Not Recovered/Not Resolved]
  - Benign prostatic hyperplasia [Unknown]
  - Asthenia [Recovered/Resolved]
  - Weight decreased [Recovered/Resolved]
  - Nausea [Recovered/Resolved]
  - Renal cyst [Unknown]
  - Vomiting [Recovered/Resolved]
  - Cholelithiasis [Unknown]

NARRATIVE: CASE EVENT DATE: 2017
